FAERS Safety Report 8607309-6 (Version None)
Quarter: 2012Q3

REPORT INFORMATION
  Report Type: 
  Country: None (occurrence: None)
  Receive Date: 20120807
  Receipt Date: 20120725
  Transmission Date: 20120928
  Serious: Yes (Other)
  Sender: FDA-Public Use
  Company Number: 2012AP002283

PATIENT
  Sex: Female

DRUGS (8)
  1. MMYCOPHENOLATE (MYCOPHENOLATE MOFETIL) [Concomitant]
  2. CICLOSPIRIN (CICLOSPORIN) [Concomitant]
  3. ETHAMBUTOL HYDROCHLORIDE [Concomitant]
  4. ISONIAZID [Suspect]
     Indication: PULMONARY TUBERCULOSIS
  5. PREDNISOLONE [Concomitant]
  6. LEVOFLOXACIN [Suspect]
     Indication: PULMONARY TUBERCULOSIS
  7. LEVOFLOXACIN [Suspect]
     Indication: OFF LABEL USE
  8. PYRAZINAMIDE [Suspect]
     Indication: PULMONARY TUBERCULOSIS

REACTIONS (4)
  - HEPATITIS [None]
  - HYPERURICAEMIA [None]
  - OFF LABEL USE [None]
  - ARTHRALGIA [None]
